FAERS Safety Report 6278845-5 (Version None)
Quarter: 2009Q3

REPORT INFORMATION
  Report Type: 
  Country: None (occurrence: None)
  Receive Date: 20090723
  Receipt Date: 20090717
  Transmission Date: 20100115
  Serious: Yes (Hospitalization, Other)
  Sender: FDA-Public Use
  Company Number: US-BIOGENIDEC-2009BI016208

PATIENT
  Age: 37 Year
  Sex: Male
  Weight: 90 kg

DRUGS (4)
  1. AVONEX [Suspect]
     Indication: MULTIPLE SCLEROSIS
     Route: 030
     Dates: start: 20090409, end: 20090416
  2. AVONEX [Suspect]
     Route: 030
     Dates: start: 20090423, end: 20090430
  3. AVONEX [Suspect]
     Route: 030
     Dates: start: 20090507, end: 20090626
  4. MEDICATIONS (NOS) [Concomitant]
     Indication: DRUG USE FOR UNKNOWN INDICATION

REACTIONS (7)
  - ABASIA [None]
  - BACK PAIN [None]
  - INFLUENZA LIKE ILLNESS [None]
  - LIVER INJURY [None]
  - MUSCLE SPASTICITY [None]
  - TREMOR [None]
  - VOMITING [None]
